FAERS Safety Report 4410659-0 (Version None)
Quarter: 2004Q3

REPORT INFORMATION
  Report Type: 
  Country: None (occurrence: None)
  Receive Date: 20040729
  Receipt Date: 20040706
  Transmission Date: 20050211
  Serious: Yes (Life-Threatening, Hospitalization)
  Sender: FDA-Public Use
  Company Number: 200417067GDDC

PATIENT
  Age: 43 Year
  Sex: Female
  Weight: 55 kg

DRUGS (14)
  1. LEFLUNOMIDE [Suspect]
     Indication: RHEUMATOID ARTHRITIS
     Dosage: DOSE: UNK
  2. METHOTREXATE [Suspect]
     Indication: RHEUMATOID ARTHRITIS
     Dates: end: 20020703
  3. ESTROGEN [Concomitant]
     Dosage: DOSE: LOW DOSE
  4. ALBUTEROL [Concomitant]
     Dosage: DOSE: UNK
  5. BUDESONIDE [Concomitant]
     Dosage: DOSE: UNK
  6. FOLIC ACID [Concomitant]
  7. FLUVOXAMINE MALEATE [Concomitant]
  8. FERROUS SULFATE TAB [Concomitant]
  9. DICLOFENAC SODIUM [Concomitant]
  10. PERICYAZINE [Concomitant]
     Dosage: DOSE: UNK
  11. OMEPRAZOLE [Concomitant]
  12. RISEDRONATE SODIUM [Concomitant]
  13. TRISEQUENS [Concomitant]
     Dosage: DOSE: UNK
  14. CALCIUM [Concomitant]
     Dosage: DOSE: UNK

REACTIONS (9)
  - ALANINE AMINOTRANSFERASE INCREASED [None]
  - BLOOD ALKALINE PHOSPHATASE INCREASED [None]
  - BRONCHITIS [None]
  - GAMMA-GLUTAMYLTRANSFERASE INCREASED [None]
  - HEPATIC FUNCTION ABNORMAL [None]
  - MALAISE [None]
  - PANCYTOPENIA [None]
  - PNEUMONIA [None]
  - RENAL IMPAIRMENT [None]
